FAERS Safety Report 9891828 (Version 2)
Quarter: 2014Q1

REPORT INFORMATION
  Report Type: Spontaneous
  Country: US (occurrence: US)
  Receive Date: 20140212
  Receipt Date: 20140306
  Transmission Date: 20141002
  Serious: Yes (Death, Other)
  Sender: FDA-Public Use
  Company Number: US-BRISTOL-MYERS SQUIBB COMPANY-20143772

PATIENT
  Age: 81 Year
  Sex: Male

DRUGS (8)
  1. ELIQUIS [Suspect]
     Indication: ATRIAL FIBRILLATION
     Dates: start: 20130628, end: 20131214
  2. COLCHICINE [Concomitant]
     Dosage: TABS
  3. LISINOPRIL + HCTZ [Concomitant]
     Dosage: 1DF=20-25 MG TABS
  4. MAGNESIUM OXIDE [Concomitant]
     Dosage: TABS
  5. METOPROLOL TARTRATE [Concomitant]
     Dosage: TABS
  6. OMEPRAZOLE [Concomitant]
  7. POTASSIUM CHLORIDE [Concomitant]
  8. PRAVACHOL [Concomitant]
     Dosage: TABS

REACTIONS (2)
  - Haemorrhage intracranial [Fatal]
  - Fall [Unknown]
